FAERS Safety Report 13945376 (Version 2)
Quarter: 2017Q3

REPORT INFORMATION
  Report Type: Spontaneous
  Country: US (occurrence: US)
  Receive Date: 20170907
  Receipt Date: 20170928
  Transmission Date: 20171128
  Serious: Yes (Hospitalization, Other)
  Sender: FDA-Public Use
  Company Number: US-PFIZER INC-2017381029

PATIENT
  Age: 69 Year
  Sex: Male

DRUGS (1)
  1. VIAGRA [Suspect]
     Active Substance: SILDENAFIL CITRATE
     Indication: TYPE 2 DIABETES MELLITUS
     Dosage: 100 MG 1 HR BEFORE RELATIONS

REACTIONS (2)
  - Myocardial infarction [Recovered/Resolved]
  - Product use in unapproved indication [Unknown]
